FAERS Safety Report 15187270 (Version 1)
Quarter: 2018Q3

REPORT INFORMATION
  Report Type: Report from Study
  Country: US (occurrence: US)
  Receive Date: 20180723
  Receipt Date: 20180723
  Transmission Date: 20181010
  Serious: No
  Sender: FDA-Public Use
  Company Number: US-EXELIXIS-CABO-17011690

PATIENT
  Sex: Male

DRUGS (24)
  1. ATENOLOL. [Concomitant]
     Active Substance: ATENOLOL
  2. DIZEPAM [Concomitant]
  3. FERROUS [Concomitant]
     Active Substance: IRON
  4. PROAIR HFA [Concomitant]
     Active Substance: ALBUTEROL SULFATE
  5. TAMSULOSIN [Concomitant]
     Active Substance: TAMSULOSIN
  6. CABOMETYX [Suspect]
     Active Substance: CABOZANTINIB S-MALATE
     Dosage: 20 MG, QD
     Route: 048
     Dates: start: 201711
  7. FINASTERIDE. [Concomitant]
     Active Substance: FINASTERIDE
  8. FUROSEMIDE. [Concomitant]
     Active Substance: FUROSEMIDE
  9. HYDROCODONE/ACETAMINOPHEN [Concomitant]
     Active Substance: ACETAMINOPHEN\HYDROCODONE
  10. MORPHINE [Concomitant]
     Active Substance: MORPHINE
  11. CETIRIZINE [Concomitant]
     Active Substance: CETIRIZINE HYDROCHLORIDE
  12. DRONABINOL. [Concomitant]
     Active Substance: DRONABINOL
  13. ONDANSETRON [Concomitant]
     Active Substance: ONDANSETRON
  14. PLAVIX [Concomitant]
     Active Substance: CLOPIDOGREL BISULFATE
  15. CABOMETYX [Suspect]
     Active Substance: CABOZANTINIB S-MALATE
     Indication: RENAL CANCER
     Dosage: 60 MG, QD
     Route: 048
     Dates: start: 20170311
  16. CYCLOBENZAPRIN [Concomitant]
     Active Substance: CYCLOBENZAPRINE
  17. DIPHENOXYLATE/ATROPINE [Concomitant]
     Active Substance: ATROPINE\DIPHENOXYLATE
  18. GABAPENTIN. [Concomitant]
     Active Substance: GABAPENTIN
  19. SUTENT [Concomitant]
     Active Substance: SUNITINIB MALATE
  20. MEGESTROL ACETATE. [Concomitant]
     Active Substance: MEGESTROL ACETATE
  21. ACETAMINOPHEN. [Concomitant]
     Active Substance: ACETAMINOPHEN
  22. ASPIRIN. [Concomitant]
     Active Substance: ASPIRIN
  23. CLONIDINE. [Concomitant]
     Active Substance: CLONIDINE
  24. PANTOPRAZOLE SODIUM. [Concomitant]
     Active Substance: PANTOPRAZOLE SODIUM

REACTIONS (1)
  - Metastases to spine [Unknown]
